FAERS Safety Report 24342621 (Version 1)
Quarter: 2024Q3

REPORT INFORMATION
  Report Type: Report from Study
  Country: US (occurrence: US)
  Receive Date: 20240920
  Receipt Date: 20240920
  Transmission Date: 20241016
  Serious: Yes (Hospitalization)
  Sender: JOHNSON AND JOHNSON
  Company Number: US-JNJFOC-20240939985

PATIENT
  Sex: Female

DRUGS (15)
  1. SPRAVATO [Suspect]
     Active Substance: ESKETAMINE
     Indication: Depression
     Dosage: ^56 MG, 1 TOTAL DOSE^
     Dates: start: 20220818, end: 20220818
  2. SPRAVATO [Suspect]
     Active Substance: ESKETAMINE
     Dosage: ^70 MG, 1 TOTAL DOSE^
     Dates: start: 20220823, end: 20220823
  3. SPRAVATO [Suspect]
     Active Substance: ESKETAMINE
     Dosage: ^84 MG, 9 TOTAL DOSES^
     Dates: start: 20220825, end: 20221114
  4. SPRAVATO [Suspect]
     Active Substance: ESKETAMINE
     Dosage: ^98 MG, 1 TOTAL DOSE^
     Dates: start: 20221122, end: 20221122
  5. SPRAVATO [Suspect]
     Active Substance: ESKETAMINE
     Dosage: ^112 MG, 1 TOTAL DOSE^
     Dates: start: 20221205, end: 20221205
  6. SPRAVATO [Suspect]
     Active Substance: ESKETAMINE
     Dosage: ^98 MG, 1 TOTAL DOSE^
     Dates: start: 20230120, end: 20230120
  7. SPRAVATO [Suspect]
     Active Substance: ESKETAMINE
     Dosage: ^112 MG, 7 TOTAL DOSES^
     Dates: start: 20230126, end: 20230508
  8. SPRAVATO [Suspect]
     Active Substance: ESKETAMINE
     Dosage: ^56 MG, 1 TOTAL DOSE^
     Dates: start: 20230619, end: 20230619
  9. SPRAVATO [Suspect]
     Active Substance: ESKETAMINE
     Dosage: ^84 MG, 2 TOTAL DOSES^
     Dates: start: 20230628, end: 20230711
  10. SPRAVATO [Suspect]
     Active Substance: ESKETAMINE
     Dosage: ^98 MG, 1 TOTAL DOSE^
     Dates: start: 20230725, end: 20230725
  11. SPRAVATO [Suspect]
     Active Substance: ESKETAMINE
     Dosage: ^112 MG, 8 TOTAL DOSES^
     Dates: start: 20230808, end: 20231220
  12. SPRAVATO [Suspect]
     Active Substance: ESKETAMINE
     Dosage: ^126 MG, 1 TOTAL DOSE^
     Dates: start: 20231226, end: 20231226
  13. SPRAVATO [Suspect]
     Active Substance: ESKETAMINE
     Dosage: ^140 MG, 17 TOTAL DOSES^
     Dates: start: 20240103, end: 20240425
  14. SPRAVATO [Suspect]
     Active Substance: ESKETAMINE
     Dosage: ^112 MG, 1 TOTAL DOSE^
     Dates: start: 20240621, end: 20240621
  15. SPRAVATO [Suspect]
     Active Substance: ESKETAMINE
     Dosage: ^140 MG, 1 TOTAL DOSE^
     Dates: start: 20240628, end: 20240628

REACTIONS (1)
  - Hospitalisation [Unknown]
